FAERS Safety Report 9301847 (Version 1)
Quarter: 2013Q2

REPORT INFORMATION
  Report Type: Spontaneous
  Country: US (occurrence: US)
  Receive Date: 20130521
  Receipt Date: 20130521
  Transmission Date: 20140414
  Serious: No
  Sender: FDA-Public Use
  Company Number: US-TEVA-360995USA

PATIENT
  Age: 55 Year
  Sex: Female

DRUGS (2)
  1. FENTORA [Suspect]
     Indication: BREAKTHROUGH PAIN
     Route: 002
  2. FENTORA [Suspect]
     Indication: BREAKTHROUGH PAIN
     Dosage: 2 X 100 MCG
     Route: 002

REACTIONS (2)
  - Headache [Unknown]
  - Drug effect decreased [Unknown]
